FAERS Safety Report 15149008 (Version 1)
Quarter: 2018Q3

REPORT INFORMATION
  Report Type: Report from Study
  Country: IT (occurrence: IT)
  Receive Date: 20180716
  Receipt Date: 20180716
  Transmission Date: 20181010
  Serious: Yes (Hospitalization, Congenital Anomaly, Other)
  Sender: FDA-Public Use
  Company Number: IT-TEVA-2018-IT-926354

PATIENT
  Sex: Male

DRUGS (3)
  1. CARBOLITHIUM [Suspect]
     Active Substance: LITHIUM CARBONATE
     Dosage: THE TREATMENT WAS CONTINUED TILL 39 WEEKS OF GESTATION
     Route: 064
  2. ESCITALOPRAM [Suspect]
     Active Substance: ESCITALOPRAM OXALATE
     Dosage: THE TREATMENT WAS CONTINUED UNTIL SIX WEEKS OF GESTATION
     Route: 064
  3. LORAZEPAM. [Concomitant]
     Active Substance: LORAZEPAM
     Dosage: THE TREATMENT WAS CONTINUED UNTIL 38 WEEKS OF GESTATION
     Route: 064

REACTIONS (3)
  - Foetal exposure during pregnancy [Unknown]
  - Live birth [Unknown]
  - Hypoplastic left heart syndrome [Recovered/Resolved]
